FAERS Safety Report 7518408-4 (Version None)
Quarter: 2011Q2

REPORT INFORMATION
  Report Type: 
  Country: None (occurrence: None)
  Receive Date: 20110602
  Receipt Date: 20110524
  Transmission Date: 20111010
  Serious: Yes (Hospitalization)
  Sender: FDA-Public Use
  Company Number: GB-TEVA-283807ISR

PATIENT
  Age: 71 Year
  Sex: Female

DRUGS (4)
  1. OSELTAMIVIR PHOSPHATE [Suspect]
     Indication: ILL-DEFINED DISORDER
     Route: 048
     Dates: start: 20090704, end: 20090708
  2. DOXYCYCLINE [Suspect]
     Indication: LOWER RESPIRATORY TRACT INFECTION
     Dates: start: 20090706, end: 20090712
  3. FUROSEMIDE [Suspect]
     Route: 048
     Dates: start: 20090704
  4. AMOXICILLIN [Suspect]
     Indication: LOWER RESPIRATORY TRACT INFECTION
     Route: 048
     Dates: start: 20090704, end: 20090706

REACTIONS (3)
  - VOMITING [None]
  - ATRIAL FIBRILLATION [None]
  - DIARRHOEA [None]
